FAERS Safety Report 8932938 (Version 1)
Quarter: 2012Q4

REPORT INFORMATION
  Report Type: 
  Country: US (occurrence: US)
  Receive Date: 20121128
  Receipt Date: 20121128
  Transmission Date: 20130627
  Serious: Yes (Hospitalization)
  Sender: FDA-Public Use
  Company Number: US-BAYER-2012-122458

PATIENT
  Age: 45 Year
  Sex: Male

DRUGS (10)
  1. BAYER GENUINE ASPIRIN ORIGINAL STRENGTH [Suspect]
     Dosage: 325 mg, UNK
     Dates: start: 20100510
  2. CLOPIDOGREL [Suspect]
     Dosage: 600 mg, ONCE
     Route: 048
     Dates: start: 20100514, end: 20100514
  3. CLOPIDOGREL [Suspect]
     Dosage: 75 mg, UNK
     Dates: start: 20100515
  4. SIMVASTATIN [Concomitant]
     Dosage: UNK
  5. METOPROLOL [Concomitant]
     Dosage: UNK
  6. LISINOPRIL [Concomitant]
     Dosage: UNK
  7. GLYCERYL TRINITRATE [Concomitant]
     Dosage: UNK
     Route: 060
  8. FISH OIL [Concomitant]
     Dosage: UNK
  9. ISOSORBIDE [Concomitant]
  10. FAMOTIDINE [Concomitant]

REACTIONS (17)
  - Coronary artery stenosis [None]
  - Chest discomfort [None]
  - Chest pain [None]
  - Coronary artery disease [None]
  - Coronary artery occlusion [None]
  - Ejection fraction [None]
  - Ventricular hypokinesia [None]
  - Coronary artery stenosis [None]
  - Chest discomfort [None]
  - Dyspnoea [None]
  - Coronary artery disease [None]
  - Coronary artery occlusion [None]
  - Cardiac stress test [None]
  - Acute coronary syndrome [None]
  - Electrocardiogram change [None]
  - Blood creatine phosphokinase MB increased [None]
  - Troponin [None]
